FAERS Safety Report 8987144 (Version 1)
Quarter: 2012Q4

REPORT INFORMATION
  Report Type: 
  Country: GB (occurrence: GB)
  Receive Date: 20121226
  Receipt Date: 20121226
  Transmission Date: 20130627
  Serious: Yes (Disabling)
  Sender: FDA-Public Use
  Company Number: GB-MYLANLABS-2012S1025673

PATIENT
  Age: 29 Year
  Sex: Male
  Weight: 70 kg

DRUGS (1)
  1. PAROXETINE [Suspect]
     Indication: DEPRESSION
     Route: 048
     Dates: start: 20080223, end: 20121119

REACTIONS (11)
  - Agitation [Recovered/Resolved]
  - Anxiety [Recovered/Resolved]
  - Constipation [Recovered/Resolved]
  - Influenza like illness [Recovered/Resolved]
  - Insomnia [Recovered/Resolved]
  - Pruritus [Recovered/Resolved]
  - Arthralgia [Recovered/Resolved]
  - Lethargy [Recovered/Resolved]
  - Dizziness [Recovered/Resolved]
  - Muscle spasms [Recovered/Resolved]
  - Tremor [Recovered/Resolved]
